FAERS Safety Report 18302111 (Version 1)
Quarter: 2020Q3

REPORT INFORMATION
  Report Type: Report from Study
  Country: FR (occurrence: FR)
  Receive Date: 20200923
  Receipt Date: 20200923
  Transmission Date: 20201103
  Serious: Yes (Hospitalization)
  Sender: FDA-Public Use
  Company Number: FR-TEVA-2020-FR-1829232

PATIENT
  Age: 51 Year
  Sex: Male
  Weight: 77 kg

DRUGS (7)
  1. ALL?TRANS?RETINOIC ACID [Concomitant]
     Active Substance: TRETINOIN
     Route: 065
  2. 6?MERCAPTOPURINE [Concomitant]
     Active Substance: MERCAPTOPURINE
     Route: 065
  3. ARA?C [Concomitant]
     Active Substance: CYTARABINE
     Route: 065
  4. MITOXANTRONE [Concomitant]
     Active Substance: MITOXANTRONE HYDROCHLORIDE
  5. TRISENOX [Suspect]
     Active Substance: ARSENIC TRIOXIDE
     Route: 065
     Dates: end: 20200911
  6. IDARUBICIN [Concomitant]
     Active Substance: IDARUBICIN
     Route: 065
  7. METHOTREXATE. [Concomitant]
     Active Substance: METHOTREXATE

REACTIONS (1)
  - Acute kidney injury [Not Recovered/Not Resolved]

NARRATIVE: CASE EVENT DATE: 20200911
